FAERS Safety Report 23618875 (Version 3)
Quarter: 2024Q2

REPORT INFORMATION
  Report Type: Spontaneous
  Country: US (occurrence: US)
  Receive Date: 20240311
  Receipt Date: 20240529
  Transmission Date: 20240715
  Serious: Yes (Other)
  Sender: FDA-Public Use
  Company Number: US-BRISTOL-MYERS SQUIBB COMPANY-2024-038806

PATIENT
  Age: 70 Year
  Sex: Female

DRUGS (2)
  1. LENALIDOMIDE [Suspect]
     Active Substance: LENALIDOMIDE
     Indication: Plasma cell myeloma
     Dosage: TAKE 1 CAPSULE BY MOUTH EVERY DAY FOR 21 DAYS
     Route: 048
     Dates: start: 20221010
  2. LENALIDOMIDE [Suspect]
     Active Substance: LENALIDOMIDE
     Dosage: TAKE 1 CAPSULE BY MOUTH EVERY DAY FOR 21 DAYS
     Route: 048

REACTIONS (5)
  - COVID-19 [Recovering/Resolving]
  - Diarrhoea [Not Recovered/Not Resolved]
  - Intentional dose omission [Unknown]
  - Therapy interrupted [Unknown]
  - Product prescribing issue [Unknown]
